FAERS Safety Report 23521618 (Version 1)
Quarter: 2024Q1

REPORT INFORMATION
  Report Type: Report from Study
  Country: GB (occurrence: GB)
  Receive Date: 20240214
  Receipt Date: 20240214
  Transmission Date: 20240410
  Serious: Yes (Hospitalization)
  Sender: FDA-Public Use
  Company Number: GB-002147023-NVSC2021GB183794

PATIENT
  Sex: Male

DRUGS (2)
  1. HYRIMOZ [Suspect]
     Active Substance: ADALIMUMAB-ADAZ
     Indication: Iridocyclitis
     Dosage: 40 MG(WEEK 1 AND WEEK 3) EVERY 2 WEEKS
     Route: 058
     Dates: start: 20210804
  2. HYRIMOZ [Suspect]
     Active Substance: ADALIMUMAB-ADAZ
     Indication: Uveitis
     Dosage: 80 MG (WEEK 0)
     Route: 065
     Dates: start: 20210804

REACTIONS (2)
  - Hospitalisation [Unknown]
  - Dizziness [Unknown]
